FAERS Safety Report 7006600-7 (Version None)
Quarter: 2010Q3

REPORT INFORMATION
  Report Type: 
  Country: None (occurrence: None)
  Receive Date: 20100921
  Receipt Date: 20100921
  Transmission Date: 20110219
  Serious: Yes (Hospitalization)
  Sender: FDA-Public Use
  Company Number: None

PATIENT
  Age: 24 Year
  Sex: Female

DRUGS (2)
  1. PERCOCET [Suspect]
     Indication: CAESAREAN SECTION
     Dosage: PERCOCET Q4HR PO
     Route: 048
  2. NUBAIN [Suspect]
     Dosage: NUVAIN Q6HR IV
     Route: 042

REACTIONS (4)
  - CONDITION AGGRAVATED [None]
  - DYSPNOEA [None]
  - NO THERAPEUTIC RESPONSE [None]
  - PAIN [None]
